FAERS Safety Report 18772522 (Version 2)
Quarter: 2021Q1

REPORT INFORMATION
  Report Type: Report from Study
  Country: FR (occurrence: FR)
  Receive Date: 20210121
  Receipt Date: 20210330
  Transmission Date: 20210419
  Serious: Yes (Hospitalization)
  Sender: FDA-Public Use
  Company Number: FR-JNJFOC-20210127166

PATIENT
  Age: 69 Year
  Sex: Female
  Weight: 60 kg

DRUGS (11)
  1. FIASP [Concomitant]
     Active Substance: INSULIN ASPART
  2. BISOPROLOL [Concomitant]
     Active Substance: BISOPROLOL
  3. TOUJEO [Concomitant]
     Active Substance: INSULIN GLARGINE
  4. TRANSILANE [PLANTAGO OVATA] [Concomitant]
  5. ATARAX [Concomitant]
     Active Substance: HYDROXYZINE HYDROCHLORIDE
  6. LANSOPRAZOLE. [Concomitant]
     Active Substance: LANSOPRAZOLE
  7. RAMIPRIL. [Concomitant]
     Active Substance: RAMIPRIL
  8. TRABECTEDIN [Suspect]
     Active Substance: TRABECTEDIN
     Indication: UNDIFFERENTIATED SARCOMA
     Dosage: CUMULATIVE DOSE SINCE THE FIRST ADMINISTRATION WAS 15 MG
     Route: 042
     Dates: start: 20200731, end: 20201224
  9. NOVOMIX [Concomitant]
     Active Substance: INSULIN ASPART
  10. THYROXINE [Concomitant]
     Active Substance: LEVOTHYROXINE
  11. PELMEG [Concomitant]
     Active Substance: PEGFILGRASTIM

REACTIONS (1)
  - Catheter site inflammation [Recovered/Resolved]

NARRATIVE: CASE EVENT DATE: 20210113
